FAERS Safety Report 18037121 (Version 2)
Quarter: 2020Q3

REPORT INFORMATION
  Report Type: Spontaneous
  Country: US (occurrence: US)
  Receive Date: 20200717
  Receipt Date: 20200814
  Transmission Date: 20201103
  Serious: No
  Sender: FDA-Public Use
  Company Number: US-ASTRAZENECA-2020SE89103

PATIENT
  Age: 58 Year
  Sex: Female

DRUGS (1)
  1. RHINOCORT [Suspect]
     Active Substance: BUDESONIDE
     Indication: NASAL OBSTRUCTION
     Dosage: UNKNOWN
     Route: 065

REACTIONS (2)
  - Dyspnoea [Unknown]
  - Drug ineffective [Unknown]
